FAERS Safety Report 7363873-9 (Version None)
Quarter: 2011Q1

REPORT INFORMATION
  Report Type: 
  Country: None (occurrence: None)
  Receive Date: 20110321
  Receipt Date: 20110310
  Transmission Date: 20110831
  Serious: Yes (Hospitalization)
  Sender: FDA-Public Use
  Company Number: US-ROCHE-761441

PATIENT
  Sex: Male
  Weight: 73.6 kg

DRUGS (4)
  1. RAD001 [Suspect]
     Dosage: D1-21; CURRENT CYCLE: 4;, INTERUPPTED
     Route: 048
     Dates: start: 20101221
  2. CAPECITABINE [Suspect]
     Dosage: CURRENT CYCLE: 4; INTERUPPTED
     Route: 048
     Dates: start: 20101221
  3. BEVACIZUMAB [Suspect]
     Dosage: CURRENT CYCLE: 4; LAST DOSE PRIOR TO SAE: 28 FEBRUARY 2011
     Route: 042
     Dates: start: 20101221
  4. OXALIPLATIN [Suspect]
     Dosage: CURRENT CYCLE: 4; LAST DOSE PRIOR TO SAE: 28 FEBRUARY 2011
     Route: 042
     Dates: start: 20101221

REACTIONS (2)
  - NAUSEA [None]
  - ANXIETY [None]
